FAERS Safety Report 12525049 (Version 1)
Quarter: 2016Q3

REPORT INFORMATION
  Report Type: Spontaneous
  Country: GB (occurrence: GB)
  Receive Date: 20160704
  Receipt Date: 20160704
  Transmission Date: 20161109
  Serious: Yes (Other)
  Sender: FDA-Public Use
  Company Number: GB-PFIZER INC-2016317389

PATIENT
  Age: 46 Year
  Sex: Female
  Weight: 65.77 kg

DRUGS (5)
  1. NEURONTIN [Suspect]
     Active Substance: GABAPENTIN
     Indication: INTERVERTEBRAL DISC PROTRUSION
     Dosage: 200MG MORNING AND NIGHT, 100MG TEATIME (TITRATED UP SLOWLY THEN DOWN SLOWLY TO STOP)
     Route: 048
     Dates: start: 20160112, end: 20160508
  2. FYBOGEL MEBEVERINE [Concomitant]
     Dosage: ONLY IN LAST 28 DAYS
  3. PARACETAMOL [Concomitant]
     Active Substance: ACETAMINOPHEN
  4. LANSOPRAZOLE. [Concomitant]
     Active Substance: LANSOPRAZOLE
     Dosage: RECENTLY STOPPED
  5. CODEINE PHOSPHATE [Concomitant]
     Active Substance: CODEINE PHOSPHATE
     Dosage: STOPPED AFTER TITRATING UP GABAPENTIN.

REACTIONS (9)
  - Visual impairment [Not Recovered/Not Resolved]
  - Memory impairment [Not Recovered/Not Resolved]
  - Gastrointestinal motility disorder [Not Recovered/Not Resolved]
  - Disturbance in attention [Not Recovered/Not Resolved]
  - Fatigue [Not Recovered/Not Resolved]
  - Dizziness [Not Recovered/Not Resolved]
  - Feeling abnormal [Not Recovered/Not Resolved]
  - Speech disorder [Not Recovered/Not Resolved]
  - Flatulence [Not Recovered/Not Resolved]

NARRATIVE: CASE EVENT DATE: 20160114
